FAERS Safety Report 9397441 (Version 1)
Quarter: 2013Q3

REPORT INFORMATION
  Report Type: Spontaneous
  Country: IT (occurrence: IT)
  Receive Date: 20130712
  Receipt Date: 20130712
  Transmission Date: 20140515
  Serious: Yes (Other)
  Sender: FDA-Public Use
  Company Number: IT-JNJFOC-20130700881

PATIENT
  Age: 75 Year
  Sex: Female

DRUGS (6)
  1. DOXORUBICIN HYDROCHLORIDE (CAELYX) [Suspect]
     Indication: OVARIAN CANCER
     Route: 042
     Dates: start: 20130607, end: 20130607
  2. DOXORUBICIN HYDROCHLORIDE (CAELYX) [Suspect]
     Indication: OVARIAN CANCER
     Route: 042
     Dates: start: 20130510, end: 20130510
  3. YONDELIS [Suspect]
     Indication: OVARIAN CANCER
     Route: 065
     Dates: start: 20130607, end: 20130607
  4. YONDELIS [Suspect]
     Indication: OVARIAN CANCER
     Route: 065
     Dates: start: 20130510, end: 20130510
  5. SOLDESAM [Suspect]
     Indication: PROPHYLAXIS OF NAUSEA AND VOMITING
     Route: 042
     Dates: start: 20130607, end: 20130607
  6. ONDANSETRON [Concomitant]
     Indication: PROPHYLAXIS OF NAUSEA AND VOMITING
     Dosage: 8 MG/4 ML
     Route: 042
     Dates: start: 20130607, end: 20130607

REACTIONS (2)
  - Chest pain [Recovered/Resolved]
  - Malaise [Recovered/Resolved]
